FAERS Safety Report 25064658 (Version 3)
Quarter: 2025Q1

REPORT INFORMATION
  Report Type: Spontaneous
  Country: CO (occurrence: CO)
  Receive Date: 20250311
  Receipt Date: 20250324
  Transmission Date: 20250409
  Serious: No
  Sender: PFIZER
  Company Number: CO-PFIZER INC-PV202500012075

PATIENT
  Age: 10 Year
  Sex: Female
  Weight: 22 kg

DRUGS (1)
  1. GENOTROPIN [Suspect]
     Active Substance: SOMATROPIN
     Indication: Short stature
     Dosage: 0.8 MG, DAILY
     Route: 058
     Dates: start: 20250108

REACTIONS (3)
  - Device breakage [Unknown]
  - Drug dose omission by device [Unknown]
  - Off label use [Unknown]

NARRATIVE: CASE EVENT DATE: 20250108
